FAERS Safety Report 10090492 (Version 2)
Quarter: 2014Q2

REPORT INFORMATION
  Report Type: Report from Study
  Country: US (occurrence: US)
  Receive Date: 20140421
  Receipt Date: 20140430
  Transmission Date: 20141212
  Serious: Yes (Death, Life-Threatening, Hospitalization)
  Sender: FDA-Public Use
  Company Number: US-CELGENEUS-163-21880-14043279

PATIENT
  Age: 61 Year
  Sex: Male
  Weight: 96.4 kg

DRUGS (13)
  1. REVLIMID [Suspect]
     Indication: PLASMA CELL MYELOMA
     Dosage: 25 MILLIGRAM
     Route: 048
     Dates: start: 20140325, end: 20140407
  2. BORTEZOMIB [Suspect]
     Indication: PLASMA CELL MYELOMA
     Dosage: 1.3-2.7 MG/M2
     Route: 041
     Dates: start: 20140325, end: 20140404
  3. DECADRON [Suspect]
     Indication: PLASMA CELL MYELOMA
     Route: 048
     Dates: start: 20140325, end: 20140404
  4. AMLODIPINE [Concomitant]
     Indication: HYPERTENSION
     Dosage: 5 MILLIGRAM
     Route: 065
     Dates: start: 2004
  5. CLONIDINE [Concomitant]
     Indication: HYPERTENSION
     Dosage: .1 MILLIGRAM
     Route: 048
     Dates: start: 2004
  6. EDARBYCLOR [Concomitant]
     Indication: HYPERTENSION
     Dosage: 40-12.5 MG
     Route: 048
     Dates: start: 2012
  7. KCL [Concomitant]
     Indication: SUPPLEMENTATION THERAPY
     Dosage: 10 MILLIGRAM
     Route: 048
     Dates: start: 2013
  8. OMEPRAZOLE [Concomitant]
     Indication: GASTROOESOPHAGEAL REFLUX DISEASE
     Dosage: 20 MILLIGRAM
     Route: 048
     Dates: start: 2013
  9. ZOCOR [Concomitant]
     Indication: HYPERLIPIDAEMIA
     Dosage: 20 MILLIGRAM
     Route: 048
     Dates: start: 2009
  10. ALLOPURINOL [Concomitant]
     Indication: RENAL IMPAIRMENT
     Dosage: 600 MILLIGRAM
     Route: 048
     Dates: start: 20140325
  11. ASA [Concomitant]
     Indication: COAGULOPATHY
     Dosage: 81 MILLIGRAM
     Route: 048
     Dates: start: 20140325
  12. PROCHLORPERAZINE [Concomitant]
     Indication: NAUSEA
     Route: 048
     Dates: start: 20140325
  13. VALTREX [Concomitant]
     Indication: HERPES VIRUS INFECTION
     Dosage: 500 MILLIGRAM
     Route: 048
     Dates: start: 20140325

REACTIONS (4)
  - Cardiac arrest [Fatal]
  - Gastrointestinal obstruction [Unknown]
  - Hyperkalaemia [Unknown]
  - Renal failure acute [Unknown]
